FAERS Safety Report 23730926 (Version 2)
Quarter: 2024Q3

REPORT INFORMATION
  Report Type: Other
  Country: US (occurrence: US)
  Receive Date: 20240411
  Receipt Date: 20240821
  Transmission Date: 20241016
  Serious: Yes (Death)
  Sender: INTERCEPT PHARMACEUTICALS
  Company Number: US-INTERCEPT-PM2024000703

PATIENT
  Age: 90 Year
  Sex: Male

DRUGS (1)
  1. OCALIVA [Suspect]
     Active Substance: OBETICHOLIC ACID
     Indication: Primary biliary cholangitis
     Dosage: 10 MILLIGRAM, QD
     Route: 048
     Dates: start: 20190716

REACTIONS (1)
  - Death [Fatal]

NARRATIVE: CASE EVENT DATE: 20240111
